FAERS Safety Report 16157236 (Version 7)
Quarter: 2024Q4

REPORT INFORMATION
  Report Type: Spontaneous
  Country: DE (occurrence: DE)
  Receive Date: 20190404
  Receipt Date: 20241028
  Transmission Date: 20250115
  Serious: Yes (Death, Life-Threatening, Other)
  Sender: NOVARTIS
  Company Number: PHHY2019DE076092

PATIENT
  Age: 14 Month
  Sex: Male
  Weight: 9.7 kg

DRUGS (7)
  1. CYCLOSPORINE [Suspect]
     Active Substance: CYCLOSPORINE
     Indication: Liver transplant
     Dosage: UNK
     Route: 042
  2. CYCLOSPORINE [Suspect]
     Active Substance: CYCLOSPORINE
     Indication: Immunosuppressant drug therapy
  3. BASILIXIMAB [Suspect]
     Active Substance: BASILIXIMAB
     Indication: Liver transplant
     Dosage: UNK
     Route: 042
  4. BASILIXIMAB [Suspect]
     Active Substance: BASILIXIMAB
     Indication: Immunosuppressant drug therapy
  5. PREDNISOLONE [Suspect]
     Active Substance: PREDNISOLONE
     Indication: Liver transplant
     Dosage: UNK
     Route: 042
  6. PREDNISOLONE [Suspect]
     Active Substance: PREDNISOLONE
     Indication: Immunosuppressant drug therapy
  7. OXCARBAZEPINE [Concomitant]
     Active Substance: OXCARBAZEPINE
     Indication: Seizure
     Dosage: UNK
     Route: 065

REACTIONS (10)
  - Respiratory failure [Fatal]
  - Drug level above therapeutic [Unknown]
  - Epilepsy [Unknown]
  - Cholangitis [Unknown]
  - Portal vein thrombosis [Unknown]
  - Portal hypertension [Unknown]
  - Ascites [Unknown]
  - Pneumonia [Unknown]
  - Toxicity to various agents [Unknown]
  - Product use in unapproved indication [Unknown]
